FAERS Safety Report 22368111 (Version 1)
Quarter: 2023Q2

REPORT INFORMATION
  Report Type: Spontaneous
  Country: US (occurrence: None)
  Receive Date: 20230525
  Receipt Date: 20230525
  Transmission Date: 20230722
  Serious: No
  Sender: FDA-Public Use
  Company Number: None

PATIENT
  Sex: 0

DRUGS (1)
  1. BUPROPION [Suspect]
     Active Substance: BUPROPION
     Indication: Generalised anxiety disorder

REACTIONS (7)
  - Product substitution issue [None]
  - Insomnia [None]
  - Depression [None]
  - Anxiety [None]
  - Irritability [None]
  - Headache [None]
  - Menstrual disorder [None]
